FAERS Safety Report 22879774 (Version 8)
Quarter: 2024Q1

REPORT INFORMATION
  Report Type: Spontaneous
  Country: CZ (occurrence: CZ)
  Receive Date: 20230829
  Receipt Date: 20240319
  Transmission Date: 20240410
  Serious: Yes (Other)
  Sender: FDA-Public Use
  Company Number: CZ-MYLANLABS-2023M1090576

PATIENT
  Age: 69 Year
  Sex: Female

DRUGS (22)
  1. PACLITAXEL [Suspect]
     Active Substance: PACLITAXEL
     Indication: Invasive breast carcinoma
     Dosage: UNK, QW (TOGETHER WITH TRASTUZUMAB WEEKLY REGIMEN)
     Route: 042
     Dates: start: 2020
  2. PACLITAXEL [Suspect]
     Active Substance: PACLITAXEL
     Indication: Breast cancer metastatic
     Dosage: UNK
     Route: 065
  3. PACLITAXEL [Suspect]
     Active Substance: PACLITAXEL
     Indication: HER2 positive breast cancer
  4. PACLITAXEL [Suspect]
     Active Substance: PACLITAXEL
     Indication: Breast cancer
  5. TRASTUZUMAB [Suspect]
     Active Substance: TRASTUZUMAB
     Indication: HER2 positive breast cancer
     Dosage: 6 MILLIGRAM/KILOGRAM (ON DAY 1 OF A 21-DAY CYCLE)
     Route: 042
     Dates: start: 2020
  6. TRASTUZUMAB [Suspect]
     Active Substance: TRASTUZUMAB
     Indication: Breast cancer metastatic
     Dosage: UNK,QW(WEEKLY REGIMEN)
     Route: 065
  7. TRASTUZUMAB [Suspect]
     Active Substance: TRASTUZUMAB
     Indication: Breast cancer
  8. TRASTUZUMAB [Suspect]
     Active Substance: TRASTUZUMAB
     Indication: Adjuvant therapy
  9. TRASTUZUMAB [Suspect]
     Active Substance: TRASTUZUMAB
     Indication: Breast cancer
  10. NERLYNX [Suspect]
     Active Substance: NERATINIB
     Indication: HER2 positive breast cancer
     Dosage: 240 MILLIGRAM, QD (1/DAY),(6 TABLETS)
     Route: 048
     Dates: start: 20220510, end: 202205
  11. NERLYNX [Suspect]
     Active Substance: NERATINIB
     Indication: Adjuvant therapy
     Dosage: 200 MILLIGRAM, QD (1/DAY),(5 TABLETS)
     Route: 048
     Dates: start: 202205
  12. ANASTROZOLE [Suspect]
     Active Substance: ANASTROZOLE
     Indication: HER2 positive breast cancer
     Dosage: UNK
     Route: 065
     Dates: start: 20220510
  13. ANASTROZOLE [Suspect]
     Active Substance: ANASTROZOLE
     Indication: Adjuvant therapy
  14. EXEMESTANE [Suspect]
     Active Substance: EXEMESTANE
     Indication: HER2 positive breast cancer
     Dosage: UNK
     Route: 065
  15. EXEMESTANE [Suspect]
     Active Substance: EXEMESTANE
     Indication: Breast cancer
  16. EXEMESTANE [Suspect]
     Active Substance: EXEMESTANE
     Indication: Adjuvant therapy
  17. CYCLOPHOSPHAMIDE [Suspect]
     Active Substance: CYCLOPHOSPHAMIDE
     Indication: Breast cancer
     Dosage: UNK,QW
     Route: 065
  18. CYCLOPHOSPHAMIDE [Suspect]
     Active Substance: CYCLOPHOSPHAMIDE
     Indication: HER2 positive breast cancer
     Dosage: UNK (NEOADJUVANT THERAPY)
     Route: 065
  19. CYCLOPHOSPHAMIDE [Suspect]
     Active Substance: CYCLOPHOSPHAMIDE
     Indication: Neoadjuvant therapy
     Dosage: 4X AC (DOXORUBICIN PLUS CYCLOPHOSPHAMIDE)
     Route: 065
  20. DOXORUBICIN [Suspect]
     Active Substance: DOXORUBICIN
     Indication: Breast cancer
     Dosage: UNK, QW
     Route: 065
  21. DOXORUBICIN [Suspect]
     Active Substance: DOXORUBICIN
     Indication: HER2 positive breast cancer
     Dosage: UNK (NEOADJUVANT THERAPY)
     Route: 065
  22. DOXORUBICIN [Suspect]
     Active Substance: DOXORUBICIN
     Indication: Neoadjuvant therapy
     Dosage: 4X AC (DOXORUBICIN PLUS CYCLOPHOSPHAMIDE)
     Route: 065

REACTIONS (9)
  - Cardiac failure [Recovered/Resolved]
  - Ejection fraction decreased [Unknown]
  - Left ventricular dysfunction [Unknown]
  - Diarrhoea [Recovered/Resolved]
  - Chest discomfort [Unknown]
  - Loss of personal independence in daily activities [Recovered/Resolved]
  - Rash pruritic [Recovered/Resolved]
  - Urticaria [Recovered/Resolved]
  - Drug ineffective [Unknown]

NARRATIVE: CASE EVENT DATE: 20200101
